FAERS Safety Report 16166645 (Version 3)
Quarter: 2019Q2

REPORT INFORMATION
  Report Type: Spontaneous
  Country: FR (occurrence: FR)
  Receive Date: 20190407
  Receipt Date: 20190520
  Transmission Date: 20190711
  Serious: Yes (Other)
  Sender: FDA-Public Use
  Company Number: FR-TEVA-2019-FR-1035571

PATIENT
  Age: 59 Year
  Sex: Female
  Weight: 69 kg

DRUGS (4)
  1. ESTREVA 0,1 %, GEL [Suspect]
     Active Substance: ESTRADIOL
     Indication: HORMONE REPLACEMENT THERAPY
     Route: 003
     Dates: start: 20110101, end: 201902
  2. UTROGESTAN [Suspect]
     Active Substance: PROGESTERONE
     Indication: HORMONE REPLACEMENT THERAPY
     Route: 048
     Dates: start: 20110101, end: 201902
  3. LEVOTHYROX [Concomitant]
     Active Substance: LEVOTHYROXINE
     Route: 065
  4. ESCITALOPRAM [Concomitant]
     Active Substance: ESCITALOPRAM OXALATE
     Route: 065

REACTIONS (1)
  - Invasive ductal breast carcinoma [Not Recovered/Not Resolved]

NARRATIVE: CASE EVENT DATE: 20190214
